FAERS Safety Report 15337726 (Version 2)
Quarter: 2018Q3

REPORT INFORMATION
  Report Type: Spontaneous
  Country: BR (occurrence: BR)
  Receive Date: 20180831
  Receipt Date: 20180904
  Transmission Date: 20181010
  Serious: Yes (Hospitalization, Other)
  Sender: FDA-Public Use
  Company Number: BR-009507513-1808BRA013302

PATIENT
  Age: 78 Year
  Sex: Male

DRUGS (4)
  1. CARBOPLATIN. [Suspect]
     Active Substance: CARBOPLATIN
     Indication: LUNG NEOPLASM MALIGNANT
     Dosage: AUC 5
     Dates: start: 20180720
  2. ZOLEDRONIC ACID [Concomitant]
     Active Substance: ZOLEDRONIC ACID
     Dosage: 4 MG, UNK
     Route: 042
     Dates: start: 20180720
  3. KEYTRUDA [Suspect]
     Active Substance: PEMBROLIZUMAB
     Indication: LUNG NEOPLASM MALIGNANT
     Dosage: 200 MG, UNK
     Dates: start: 20180720
  4. PEMETREXED DISODIUM [Concomitant]
     Active Substance: PEMETREXED DISODIUM
     Indication: LUNG NEOPLASM MALIGNANT
     Dosage: 500 MG/M2, UNK
     Dates: start: 20180720

REACTIONS (6)
  - Atrial fibrillation [Recovering/Resolving]
  - Respiratory failure [Recovering/Resolving]
  - Coronary artery disease [Recovering/Resolving]
  - Acute myocardial infarction [Recovering/Resolving]
  - Pulmonary congestion [Recovering/Resolving]
  - Cardiogenic shock [Recovering/Resolving]

NARRATIVE: CASE EVENT DATE: 2018
